FAERS Safety Report 10279092 (Version 2)
Quarter: 2014Q3

REPORT INFORMATION
  Report Type: Spontaneous
  Country: JP (occurrence: JP)
  Receive Date: 20140707
  Receipt Date: 20140826
  Transmission Date: 20150326
  Serious: Yes (Hospitalization)
  Sender: FDA-Public Use
  Company Number: JP-ROCHE-1429486

PATIENT
  Age: 51 Year
  Sex: Female
  Weight: 88 kg

DRUGS (25)
  1. DENOTAS [Concomitant]
     Active Substance: CALCIUM CARBONATE\CHOLECALCIFEROL\MAGNESIUM CARBONATE
     Route: 048
  2. TRAZENTA [Concomitant]
     Active Substance: LINAGLIPTIN
     Route: 048
  3. MAGNESIUM OXIDE. [Concomitant]
     Active Substance: MAGNESIUM OXIDE
     Route: 048
  4. FEMARA [Concomitant]
     Active Substance: LETROZOLE
     Route: 048
  5. MOHRUS TAPE L [Concomitant]
     Dosage: UNCERTAIN DOSAGE AND WAIST
     Route: 061
  6. DL-METHYLEPHEDRINE HYDROCHLORIDE [Concomitant]
     Route: 048
  7. SELTOUCH [Concomitant]
     Active Substance: FELBINAC
     Dosage: UNCERTAIN DOSAGE AND WAIST
     Route: 061
  8. CAFFEINE. [Concomitant]
     Active Substance: CAFFEINE
     Dosage: AMOUNT 3
     Route: 048
  9. HICEE [Concomitant]
     Dosage: AMOUNT 3
     Route: 048
  10. MUCOSTA [Concomitant]
     Active Substance: REBAMIPIDE
     Route: 048
  11. DIHYDROCODEINE PHOSPHATE [Concomitant]
     Active Substance: DIHYDROCODEINE PHOSPHATE
     Route: 048
  12. HALCION [Concomitant]
     Active Substance: TRIAZOLAM
     Route: 048
  13. LANTUS [Concomitant]
     Active Substance: INSULIN GLARGINE
     Route: 058
  14. PYRINAZIN [Concomitant]
     Active Substance: ACETAMINOPHEN
     Route: 048
  15. CELECOX [Concomitant]
     Active Substance: CELECOXIB
     Route: 048
  16. SEIBULE [Concomitant]
     Active Substance: MIGLITOL
     Route: 048
  17. LENDORMIN [Concomitant]
     Active Substance: BROTIZOLAM
     Route: 048
  18. NIFEDIPINE CR [Concomitant]
     Route: 048
  19. ALLERGIN [Concomitant]
     Route: 048
  20. KADCYLA [Suspect]
     Active Substance: ADO-TRASTUZUMAB EMTANSINE
     Indication: BREAST CANCER METASTATIC
     Route: 041
     Dates: start: 20140620, end: 20140620
  21. DIOVAN [Concomitant]
     Active Substance: VALSARTAN
     Route: 048
  22. GENINAX [Concomitant]
     Active Substance: GARENOXACIN MESYLATE
     Route: 048
  23. LOXONIN [Concomitant]
     Active Substance: LOXOPROFEN SODIUM
     Route: 048
  24. ROZEREM [Concomitant]
     Active Substance: RAMELTEON
     Route: 048
  25. ETHENZAMIDE [Concomitant]
     Active Substance: ETHENZAMIDE
     Route: 048

REACTIONS (2)
  - Tracheal haemorrhage [Recovering/Resolving]
  - Cough [Unknown]

NARRATIVE: CASE EVENT DATE: 20140625
